FAERS Safety Report 8226481-3 (Version None)
Quarter: 2012Q1

REPORT INFORMATION
  Report Type: 
  Country: None (occurrence: None)
  Receive Date: 20120322
  Receipt Date: 20120313
  Transmission Date: 20120608
  Serious: Yes (Hospitalization, Other)
  Sender: FDA-Public Use
  Company Number: US-ASTRAZENECA-2011SE11042

PATIENT
  Age: 49 Year
  Sex: Female

DRUGS (2)
  1. SYMBICORT [Suspect]
     Route: 055
  2. NEXIUM [Suspect]
     Route: 048

REACTIONS (11)
  - MEMORY IMPAIRMENT [None]
  - THROAT TIGHTNESS [None]
  - LYMPHADENOPATHY [None]
  - OESOPHAGITIS [None]
  - MALAISE [None]
  - OROPHARYNGEAL PAIN [None]
  - DYSPNOEA [None]
  - HEADACHE [None]
  - DRUG DOSE OMISSION [None]
  - ABDOMINAL DISTENSION [None]
  - BRONCHITIS [None]
